FAERS Safety Report 14101627 (Version 1)
Quarter: 2017Q4

REPORT INFORMATION
  Report Type: Report from Study
  Country: US (occurrence: US)
  Receive Date: 20171018
  Receipt Date: 20171018
  Transmission Date: 20180321
  Serious: Yes (Hospitalization)
  Sender: FDA-Public Use
  Company Number: PHHY2017US153178

PATIENT
  Age: 10 Year
  Sex: Female
  Weight: 29.1 kg

DRUGS (4)
  1. TOBI PODHALER [Suspect]
     Active Substance: TOBRAMYCIN
     Indication: CYSTIC FIBROSIS RESPIRATORY INFECTION SUPPRESSION
  2. CYPROHEPTADINE. [Concomitant]
     Active Substance: CYPROHEPTADINE
     Indication: DECREASED APPETITE
     Route: 065
  3. CAYSTON [Concomitant]
     Active Substance: AZTREONAM
     Indication: PRODUCT USED FOR UNKNOWN INDICATION
     Dosage: 75 MG, TID
     Route: 055
     Dates: start: 201708
  4. TOBI PODHALER [Suspect]
     Active Substance: TOBRAMYCIN
     Indication: PSEUDOMONAS INFECTION
     Route: 055

REACTIONS (4)
  - Infective pulmonary exacerbation of cystic fibrosis [Recovering/Resolving]
  - Haemoptysis [Unknown]
  - Cough [Unknown]
  - Body mass index decreased [Unknown]

NARRATIVE: CASE EVENT DATE: 20171011
